FAERS Safety Report 8874288 (Version 2)
Quarter: 2012Q4

REPORT INFORMATION
  Report Type: 
  Country: US (occurrence: US)
  Receive Date: 20121023
  Receipt Date: 20121210
  Transmission Date: 20130627
  Serious: No
  Sender: FDA-Public Use
  Company Number: US-VERTEX PHARMACEUTICAL INC.-2012-023350

PATIENT
  Sex: Female
  Weight: 70 kg

DRUGS (6)
  1. VX-950 (TELAPREVIR) [Suspect]
     Indication: HEPATITIS C
     Dosage: 750 mg, tid
     Route: 048
  2. PEGINTRON                          /01543001/ [Suspect]
     Indication: HEPATITIS C
     Dosage: 120 ?g, UNK
  3. RIBAPAK [Concomitant]
     Indication: HEPATITIS C
     Dosage: 1000 mg, qd
  4. ALIVE 50 + TAB WOMENS [Concomitant]
  5. LOMOTIL [Concomitant]
     Dosage: 2.5 mg, UNK
  6. INTEGRA [Concomitant]

REACTIONS (5)
  - Injection site pain [Unknown]
  - Dizziness [Unknown]
  - Constipation [Recovered/Resolved]
  - Fatigue [Unknown]
  - Anaemia [Unknown]
